FAERS Safety Report 19885003 (Version 1)
Quarter: 2021Q3

REPORT INFORMATION
  Report Type: Spontaneous
  Country: US (occurrence: US)
  Receive Date: 20210927
  Receipt Date: 20210927
  Transmission Date: 20211014
  Serious: Yes (Hospitalization)
  Sender: FDA-Public Use
  Company Number: None

PATIENT
  Age: 34 Year
  Sex: Female
  Weight: 108 kg

DRUGS (6)
  1. OZEMPIC [Suspect]
     Active Substance: SEMAGLUTIDE
     Indication: WEIGHT DECREASED
     Dosage: ?QUANTITY:1 INJECTION(S);?OTHER FREQUENCY:ONCE WEEKLY;?
     Route: 058
     Dates: start: 20210715
  2. OZEMPIC [Suspect]
     Active Substance: SEMAGLUTIDE
     Indication: GLUCOSE TOLERANCE IMPAIRED
     Dosage: ?QUANTITY:1 INJECTION(S);?OTHER FREQUENCY:ONCE WEEKLY;?
     Route: 058
     Dates: start: 20210715
  3. MIRENA [Concomitant]
     Active Substance: LEVONORGESTREL
  4. ZOLOFT [Concomitant]
     Active Substance: SERTRALINE HYDROCHLORIDE
  5. VITAMIN D [Concomitant]
     Active Substance: VITAMIN D NOS
  6. ZYRTEC [Concomitant]
     Active Substance: CETIRIZINE HYDROCHLORIDE

REACTIONS (2)
  - Appendicitis [None]
  - Neuroendocrine tumour [None]

NARRATIVE: CASE EVENT DATE: 20210905
